FAERS Safety Report 8093031-4 (Version None)
Quarter: 2012Q1

REPORT INFORMATION
  Report Type: 
  Country: None (occurrence: None)
  Receive Date: 20120128
  Receipt Date: 20111020
  Transmission Date: 20120608
  Serious: Yes (Other)
  Sender: FDA-Public Use
  Company Number: US-ABBOTT-10P-163-0684537-00

PATIENT
  Age: 32 Year
  Sex: Female
  Weight: 50.848 kg

DRUGS (1)
  1. HUMIRA [Suspect]
     Indication: CROHN'S DISEASE
     Dates: start: 20091001

REACTIONS (9)
  - IRON DEFICIENCY ANAEMIA [None]
  - FATIGUE [None]
  - POST TRANSPLANT LYMPHOPROLIFERATIVE DISORDER [None]
  - WEIGHT DECREASED [None]
  - COLONIC STENOSIS [None]
  - NON-HODGKIN'S LYMPHOMA [None]
  - PYREXIA [None]
  - INTESTINAL T-CELL LYMPHOMA [None]
  - COLITIS [None]
